FAERS Safety Report 8072545-7 (Version None)
Quarter: 2012Q1

REPORT INFORMATION
  Report Type: 
  Country: None (occurrence: None)
  Receive Date: 20120126
  Receipt Date: 20120124
  Transmission Date: 20120608
  Serious: Yes (Hospitalization)
  Sender: FDA-Public Use
  Company Number: IT-PFIZER INC-2011132060

PATIENT
  Age: 67 Year
  Sex: Female

DRUGS (6)
  1. LYRICA [Concomitant]
     Route: 065
  2. ARMODAFINIL [Suspect]
     Indication: TOOTHACHE
     Dosage: UNK
     Route: 065
     Dates: start: 20110515, end: 20110529
  3. FLECAINIDE [Concomitant]
     Route: 065
  4. METFORMIN HCL [Concomitant]
     Route: 065
  5. METFORMIN [Concomitant]
     Route: 065
  6. ESOMEPRAZOLE SODIUM [Concomitant]
     Route: 065

REACTIONS (1)
  - HYPERSENSITIVITY [None]
